FAERS Safety Report 12122586 (Version 1)
Quarter: 2016Q1

REPORT INFORMATION
  Report Type: Spontaneous
  Country: JP (occurrence: JP)
  Receive Date: 20160227
  Receipt Date: 20160227
  Transmission Date: 20160526
  Serious: Yes (Other)
  Sender: FDA-Public Use
  Company Number: JP-ACCORD-038220

PATIENT
  Age: 76 Year
  Sex: Male

DRUGS (3)
  1. PACLITAXEL/PACLITAXEL LIPOSOME [Suspect]
     Active Substance: PACLITAXEL
     Indication: SMALL INTESTINE CARCINOMA
     Dosage: PACLITAXEL SINGLE THERAPY ON DAYS 1, 8 AND 15, EVERY 28 DAYS FOR 1 CYCLE
  2. IRINOTECAN [Suspect]
     Active Substance: IRINOTECAN
     Indication: SMALL INTESTINE CARCINOMA
     Dosage: DAY 1, EVERY 14 DAYS, 5 CYCLES OF CHEMOTHERAPY
  3. CETUXIMAB [Suspect]
     Active Substance: CETUXIMAB
     Indication: SMALL INTESTINE CARCINOMA
     Dosage: DAY 1 OF CYCLE 1, FOLLOWED BY 250 MG/M , EVERY 7 DAYS, 5 CYCLES OF CHEMOTHERAPY

REACTIONS (7)
  - Sepsis [Unknown]
  - Condition aggravated [Unknown]
  - Pneumonia [Unknown]
  - Complication associated with device [None]
  - Metastatic neoplasm [None]
  - General physical health deterioration [None]
  - Venous thrombosis [None]
